FAERS Safety Report 7373945-0 (Version None)
Quarter: 2011Q1

REPORT INFORMATION
  Report Type: 
  Country: None (occurrence: None)
  Receive Date: 20110325
  Receipt Date: 20110322
  Transmission Date: 20110831
  Serious: No
  Sender: FDA-Public Use
  Company Number: US-PFIZER INC-2011064054

PATIENT
  Age: 50 Year
  Sex: Male
  Weight: 76.6 kg

DRUGS (1)
  1. RELPAX [Suspect]
     Indication: MIGRAINE
     Dosage: 40 MG DAILY
     Dates: start: 20100601

REACTIONS (1)
  - HEADACHE [None]
